FAERS Safety Report 9355976 (Version 2)
Quarter: 2013Q4

REPORT INFORMATION
  Report Type: Spontaneous
  Country: US (occurrence: US)
  Receive Date: 20130619
  Receipt Date: 20131126
  Transmission Date: 20140711
  Serious: Yes (Hospitalization)
  Sender: FDA-Public Use
  Company Number: US-B.I. PHARMACEUTICALS,INC./RIDGEFIELD-2013-BI-16736BP

PATIENT
  Sex: Male
  Weight: 113.4 kg

DRUGS (7)
  1. PRADAXA [Suspect]
     Indication: ATRIAL FIBRILLATION
     Dosage: 300 MG
     Route: 048
     Dates: start: 20110818, end: 20120314
  2. METFORMIN [Concomitant]
     Dosage: 1000 MG
     Route: 048
  3. AMLODIPINE [Concomitant]
     Dosage: 5 MG
     Route: 048
  4. LORSARTAN [Concomitant]
     Dosage: 100 MG
     Route: 048
  5. DOXAZOSIN [Concomitant]
     Dosage: 4 MG
     Route: 048
  6. METOPROLOL SUCCINATE [Concomitant]
     Dosage: 25 MG
     Route: 048
  7. SIMVASTATIN [Concomitant]
     Dosage: 20 MG
     Route: 048

REACTIONS (13)
  - Pericardial haemorrhage [Unknown]
  - Pleural effusion [Unknown]
  - Cardiac tamponade [Unknown]
  - Pericarditis [Unknown]
  - Atrial fibrillation [Unknown]
  - Abdominal discomfort [Unknown]
  - Gingival bleeding [Recovered/Resolved]
  - Contusion [Recovered/Resolved]
  - Haematuria [Recovered/Resolved]
  - Melaena [Recovered/Resolved]
  - Headache [Recovered/Resolved]
  - Muscular weakness [Unknown]
  - Local swelling [Unknown]
